FAERS Safety Report 6300388-0 (Version None)
Quarter: 2009Q3

REPORT INFORMATION
  Report Type: 
  Country: None (occurrence: None)
  Receive Date: 20090805
  Receipt Date: 20090723
  Transmission Date: 20100115
  Serious: Yes (Hospitalization, Other)
  Sender: FDA-Public Use
  Company Number: 2009S1004154

PATIENT
  Sex: Female

DRUGS (1)
  1. EZ PREP KIT [Suspect]
     Indication: COLONOSCOPY
     Dosage: PO
     Route: 048
     Dates: start: 20070808, end: 20070809

REACTIONS (6)
  - DIALYSIS [None]
  - DIZZINESS [None]
  - NAUSEA [None]
  - PAIN [None]
  - RENAL FAILURE ACUTE [None]
  - VOMITING [None]
